FAERS Safety Report 25900150 (Version 1)
Quarter: 2025Q4

REPORT INFORMATION
  Report Type: Spontaneous
  Country: US (occurrence: US)
  Receive Date: 20251009
  Receipt Date: 20251009
  Transmission Date: 20260118
  Serious: No
  Sender: Norvium Bioscience
  Company Number: US-Norvium Bioscience LLC-080546

PATIENT
  Age: 75 Year

DRUGS (1)
  1. HYDROCHLOROTHIAZIDE [Suspect]
     Active Substance: HYDROCHLOROTHIAZIDE
     Indication: Product used for unknown indication

REACTIONS (2)
  - Fluid retention [Unknown]
  - Generalised oedema [Unknown]
